FAERS Safety Report 7673880-4 (Version None)
Quarter: 2011Q3

REPORT INFORMATION
  Report Type: 
  Country: None (occurrence: None)
  Receive Date: 20110810
  Receipt Date: 20110107
  Transmission Date: 20111222
  Serious: No
  Sender: FDA-Public Use
  Company Number: US-GLAXOSMITHKLINE-A0905845A

PATIENT
  Age: 52 Year
  Sex: Female

DRUGS (3)
  1. WELLBUTRIN [Concomitant]
     Route: 048
  2. PAXIL [Suspect]
     Indication: ANXIETY DISORDER
     Dosage: 20MGD PER DAY
     Route: 048
     Dates: start: 19980101
  3. LITHIUM CARBONATE [Concomitant]

REACTIONS (1)
  - AMENORRHOEA [None]
